FAERS Safety Report 14311635 (Version 4)
Quarter: 2018Q1

REPORT INFORMATION
  Report Type: Spontaneous
  Country: JP (occurrence: JP)
  Receive Date: 20171221
  Receipt Date: 20180125
  Transmission Date: 20180509
  Serious: Yes (Other)
  Sender: FDA-Public Use
  Company Number: JP-AMGEN-JPNSP2017188994

PATIENT
  Age: 53 Year
  Sex: Female
  Weight: 57 kg

DRUGS (12)
  1. ENDOXAN                            /00021101/ [Suspect]
     Active Substance: CYCLOPHOSPHAMIDE
     Indication: BREAST CANCER
     Dosage: 1000 MG, UNK
     Route: 041
     Dates: start: 20171205, end: 20171205
  2. G-LASTA [Suspect]
     Active Substance: PEGFILGRASTIM
     Dosage: 3.6 MG, UNK
     Route: 058
     Dates: start: 20171228, end: 20171228
  3. FARMORUBICIN [Suspect]
     Active Substance: EPIRUBICIN HYDROCHLORIDE
     Indication: BREAST CANCER
     Dosage: 150 MG, UNK
     Route: 041
     Dates: start: 20171205, end: 20171205
  4. EMEND [Concomitant]
     Active Substance: APREPITANT
     Dosage: 80 MG, UNK
     Route: 048
     Dates: start: 20171206
  5. G-LASTA [Suspect]
     Active Substance: PEGFILGRASTIM
     Indication: COLONY STIMULATING FACTOR PROPHYLAXIS
     Dosage: 3.6 MG, UNK
     Route: 058
     Dates: start: 20171208, end: 20171208
  6. FARMORUBICIN [Suspect]
     Active Substance: EPIRUBICIN HYDROCHLORIDE
     Dosage: 75 MG/M2, UNK
     Route: 041
     Dates: start: 20171225, end: 20171225
  7. ALOXI [Concomitant]
     Active Substance: PALONOSETRON HYDROCHLORIDE
     Indication: BREAST CANCER
     Dosage: 0.75 MG, 1X/3WEEKS
     Route: 042
     Dates: start: 20171205
  8. DOMPERIDONE [Concomitant]
     Active Substance: DOMPERIDONE
     Indication: BREAST CANCER
     Dosage: 10 MG, TID
     Route: 048
     Dates: start: 20171206, end: 20171212
  9. CYCLOPHOSPHAMIDE. [Concomitant]
     Active Substance: CYCLOPHOSPHAMIDE
     Dosage: UNK
     Route: 041
     Dates: start: 20171225, end: 20171225
  10. ENDOXAN                            /00021101/ [Suspect]
     Active Substance: CYCLOPHOSPHAMIDE
     Dosage: UNK
     Route: 041
     Dates: start: 20171225, end: 20171225
  11. DECADRON [Concomitant]
     Active Substance: DEXAMETHASONE
     Indication: BREAST CANCER
     Dosage: 9.9 MG, 1X/3WEEKS
     Route: 042
     Dates: start: 20171205
  12. EMEND [Concomitant]
     Active Substance: APREPITANT
     Indication: BREAST CANCER
     Dosage: 125 MG, 1X/3WEEKS
     Route: 048
     Dates: start: 20171205

REACTIONS (3)
  - Febrile neutropenia [Recovering/Resolving]
  - Drug ineffective [Recovering/Resolving]
  - Colony stimulating factor therapy [Unknown]

NARRATIVE: CASE EVENT DATE: 20171209
